FAERS Safety Report 15854604 (Version 1)
Quarter: 2019Q1

REPORT INFORMATION
  Report Type: Spontaneous
  Country: GB (occurrence: GB)
  Receive Date: 20190122
  Receipt Date: 20190122
  Transmission Date: 20190417
  Serious: Yes (Other)
  Sender: FDA-Public Use
  Company Number: GB-PFIZER INC-2019020576

PATIENT
  Age: 76 Year
  Sex: Female

DRUGS (4)
  1. LIQUIFILM TEARS [Concomitant]
     Active Substance: POLYVINYL ALCOHOL
     Dosage: UNK, (USE AS DIRECTED)
     Dates: start: 20180704
  2. FENBID [Concomitant]
     Active Substance: IBUPROFEN
     Indication: PAIN
     Dosage: 3 DF, 1X/DAY
     Dates: start: 20180704
  3. RAMIPRIL. [Concomitant]
     Active Substance: RAMIPRIL
     Indication: HYPERTENSION
     Dosage: 1 DF, 1X/DAY, (EVERY MORNING)
     Dates: start: 20180704, end: 20181221
  4. AMLODIPINE BESILATE [Suspect]
     Active Substance: AMLODIPINE BESYLATE
     Indication: HYPERTENSION
     Dosage: 10 MG, 1X/DAY, (EVERY MORNING)
     Dates: start: 20180704, end: 20181221

REACTIONS (5)
  - Reduced facial expression [Recovering/Resolving]
  - Alopecia [Unknown]
  - Pollakiuria [Unknown]
  - Pruritus [Unknown]
  - Malaise [Unknown]

NARRATIVE: CASE EVENT DATE: 2018
